FAERS Safety Report 6172373-3 (Version None)
Quarter: 2009Q2

REPORT INFORMATION
  Report Type: 
  Country: None (occurrence: None)
  Receive Date: 20090429
  Receipt Date: 20090420
  Transmission Date: 20091009
  Serious: Yes (Disabling)
  Sender: FDA-Public Use
  Company Number: PHEH2009US02706

PATIENT
  Sex: Female
  Weight: 80.9 kg

DRUGS (11)
  1. GLEEVEC [Suspect]
     Indication: CHRONIC MYELOID LEUKAEMIA
     Dosage: 400 MG, QD
     Route: 048
     Dates: start: 20050101, end: 20080901
  2. ADVAIR HFA [Concomitant]
  3. VENTOLIN [Concomitant]
  4. SPIRIVA [Concomitant]
  5. PREDNISONE [Concomitant]
  6. WARFARIN [Concomitant]
  7. AMIODARONE [Concomitant]
  8. RESTEX [Concomitant]
  9. CALCIUM [Concomitant]
  10. MULTI-VITAMINS [Concomitant]
  11. FISH OIL [Concomitant]

REACTIONS (7)
  - ASPERGILLOSIS [None]
  - BRONCHOPULMONARY ASPERGILLOSIS ALLERGIC [None]
  - MYCOBACTERIUM AVIUM COMPLEX INFECTION [None]
  - PULMONARY MASS [None]
  - RIB FRACTURE [None]
  - SEVERE ACUTE RESPIRATORY SYNDROME [None]
  - SPUTUM CULTURE POSITIVE [None]
